FAERS Safety Report 25396170 (Version 1)
Quarter: 2025Q2

REPORT INFORMATION
  Report Type: Spontaneous
  Country: US (occurrence: None)
  Receive Date: 20250603
  Receipt Date: 20250603
  Transmission Date: 20250717
  Serious: Yes (Other)
  Sender: FDA-CTU
  Company Number: None

PATIENT
  Age: 31 Year
  Sex: Male
  Weight: 81 kg

DRUGS (1)
  1. LEXAPRO [Suspect]
     Active Substance: ESCITALOPRAM OXALATE

REACTIONS (11)
  - Withdrawal syndrome [None]
  - Brain fog [None]
  - Disturbance in attention [None]
  - Hypoacusis [None]
  - Dizziness [None]
  - Panic disorder [None]
  - Anxiety [None]
  - Flat affect [None]
  - Blunted affect [None]
  - Depression [None]
  - Electric shock sensation [None]

NARRATIVE: CASE EVENT DATE: 20240715
